FAERS Safety Report 4363822-1 (Version None)
Quarter: 2004Q2

REPORT INFORMATION
  Report Type: 
  Country: None (occurrence: None)
  Receive Date: 20040521
  Receipt Date: 20040408
  Transmission Date: 20050107
  Serious: Yes (Hospitalization)
  Sender: FDA-Public Use
  Company Number: THYM-10080

PATIENT
  Age: 54 Year
  Sex: Female
  Weight: 61.2 kg

DRUGS (11)
  1. THYMOGLOBULIN [Suspect]
     Indication: PROPHYLAXIS AGAINST TRANSPLANT REJECTION
     Dosage: 153 MG QD IV
     Route: 042
     Dates: start: 20040102, end: 20040104
  2. FENOLDOPAM [Concomitant]
  3. ACYCLOVIR [Concomitant]
  4. METHYLPREDNISOLONE [Concomitant]
  5. TACROLIMUS [Concomitant]
  6. VORICONAZOLE [Concomitant]
  7. CEFEPIME [Concomitant]
  8. VANCOMYCIN [Concomitant]
  9. PROTONIX [Concomitant]
  10. BICARBONATE [Concomitant]
  11. VERSED DRIP [Concomitant]

REACTIONS (20)
  - ACTIVATED PARTIAL THROMBOPLASTIN TIME PROLONGED [None]
  - BLOOD BICARBONATE DECREASED [None]
  - BLOOD CHLORIDE INCREASED [None]
  - BLOOD CREATINE PHOSPHOKINASE INCREASED [None]
  - BLOOD PH DECREASED [None]
  - CYTOKINE RELEASE SYNDROME [None]
  - DYSPNOEA [None]
  - HYPOTENSION [None]
  - LYMPHOCYTE PERCENTAGE DECREASED [None]
  - NEUTROPHIL PERCENTAGE INCREASED [None]
  - PCO2 DECREASED [None]
  - PLATELET COUNT DECREASED [None]
  - PO2 INCREASED [None]
  - POST PROCEDURAL COMPLICATION [None]
  - PULMONARY OEDEMA [None]
  - RED BLOOD CELL COUNT DECREASED [None]
  - RENAL FAILURE ACUTE [None]
  - RENAL TUBULAR NECROSIS [None]
  - SINUS TACHYCARDIA [None]
  - WHITE BLOOD CELL COUNT DECREASED [None]
